FAERS Safety Report 17995602 (Version 2)
Quarter: 2020Q3

REPORT INFORMATION
  Report Type: Spontaneous
  Country: GB (occurrence: GB)
  Receive Date: 20200708
  Receipt Date: 20200812
  Transmission Date: 20201103
  Serious: Yes (Hospitalization)
  Sender: FDA-Public Use
  Company Number: GB-SAMSUNG BIOEPIS-SB-2020-21476

PATIENT
  Age: 64 Year
  Sex: Male

DRUGS (2)
  1. INFLIXIMAB [Suspect]
     Active Substance: INFLIXIMAB
     Indication: PUSTULAR PSORIASIS
     Dosage: UNKNOWN, ONCE EVERY 6 WEEKS
     Route: 065
  2. FLUCLOXACILLIN [Concomitant]
     Active Substance: FLUCLOXACILLIN
     Indication: WOUND INFECTION
     Dosage: UNKNOWN
     Route: 048

REACTIONS (14)
  - Pustular psoriasis [Unknown]
  - Off label use [Unknown]
  - Hyperlactacidaemia [Unknown]
  - Burning sensation [Unknown]
  - Burn infection [Unknown]
  - Leukocytosis [Unknown]
  - Cholecystitis [Unknown]
  - Tachycardia [Unknown]
  - Hepatic function abnormal [Recovered/Resolved]
  - Dermatitis exfoliative generalised [Unknown]
  - Tachypnoea [Unknown]
  - Hypotension [Unknown]
  - Inflammatory marker increased [Recovering/Resolving]
  - Renal impairment [Unknown]
